FAERS Safety Report 23097069 (Version 8)
Quarter: 2024Q4

REPORT INFORMATION
  Report Type: Report from Study
  Country: FR (occurrence: FR)
  Receive Date: 20231023
  Receipt Date: 20241009
  Transmission Date: 20250114
  Serious: Yes (Hospitalization, Other)
  Sender: EXELIXIS
  Company Number: FR-KOREA IPSEN Pharma-2023-02642

PATIENT

DRUGS (64)
  1. CABOZANTINIB [Suspect]
     Active Substance: CABOZANTINIB
     Indication: Renal cell carcinoma
     Dosage: 40 MG, QD
     Route: 048
     Dates: start: 20221125, end: 20230119
  2. CABOZANTINIB [Suspect]
     Active Substance: CABOZANTINIB
     Dosage: 20 MG, QD
     Route: 048
     Dates: start: 20230120, end: 20230127
  3. CABOZANTINIB [Suspect]
     Active Substance: CABOZANTINIB
     Dosage: 20 MG, QD
     Route: 048
     Dates: start: 20230131, end: 20230228
  4. CABOZANTINIB [Suspect]
     Active Substance: CABOZANTINIB
     Dosage: 20 MG, QD
     Route: 048
     Dates: start: 20230425, end: 20230810
  5. CABOZANTINIB [Suspect]
     Active Substance: CABOZANTINIB
     Dosage: 20 MG, QD
     Route: 048
     Dates: start: 20230814, end: 20230926
  6. CABOZANTINIB [Suspect]
     Active Substance: CABOZANTINIB
     Dosage: 20 MG, QD
     Route: 048
     Dates: start: 20231005, end: 20240730
  7. CABOZANTINIB [Suspect]
     Active Substance: CABOZANTINIB
     Dosage: 20 MG, QD
     Route: 048
     Dates: start: 20240813
  8. NIVOLUMAB [Suspect]
     Active Substance: NIVOLUMAB
     Indication: Renal cell carcinoma
     Dosage: 240MG, ONCE
     Route: 042
     Dates: start: 20221125
  9. NIVOLUMAB [Suspect]
     Active Substance: NIVOLUMAB
     Dosage: 240MG, ONCE
     Route: 042
     Dates: start: 20221209
  10. NIVOLUMAB [Suspect]
     Active Substance: NIVOLUMAB
     Dosage: 240MG, ONCE
     Route: 042
     Dates: start: 20221223
  11. NIVOLUMAB [Suspect]
     Active Substance: NIVOLUMAB
     Dosage: 240MG, ONCE
     Route: 042
     Dates: start: 20230106
  12. NIVOLUMAB [Suspect]
     Active Substance: NIVOLUMAB
     Dosage: 240MG, ONCE
     Route: 042
     Dates: start: 20230120
  13. NIVOLUMAB [Suspect]
     Active Substance: NIVOLUMAB
     Dosage: 240MG, ONCE
     Route: 042
     Dates: start: 20230203
  14. NIVOLUMAB [Suspect]
     Active Substance: NIVOLUMAB
     Dosage: 240MG, ONCE
     Route: 042
     Dates: start: 20230217
  15. NIVOLUMAB [Suspect]
     Active Substance: NIVOLUMAB
     Dosage: 240MG, ONCE
     Route: 042
     Dates: start: 20230411
  16. NIVOLUMAB [Suspect]
     Active Substance: NIVOLUMAB
     Dosage: 240MG, ONCE
     Route: 042
     Dates: start: 20230425
  17. NIVOLUMAB [Suspect]
     Active Substance: NIVOLUMAB
     Dosage: 240MG, ONCE
     Route: 042
     Dates: start: 20230510
  18. NIVOLUMAB [Suspect]
     Active Substance: NIVOLUMAB
     Dosage: 240MG, ONCE
     Route: 042
     Dates: start: 20230523
  19. NIVOLUMAB [Suspect]
     Active Substance: NIVOLUMAB
     Dosage: 240MG, ONCE
     Route: 042
     Dates: start: 20230606
  20. NIVOLUMAB [Suspect]
     Active Substance: NIVOLUMAB
     Dosage: 240MG, ONCE
     Route: 042
     Dates: start: 20230620
  21. NIVOLUMAB [Suspect]
     Active Substance: NIVOLUMAB
     Dosage: 240MG, ONCE
     Route: 042
     Dates: start: 20230704
  22. NIVOLUMAB [Suspect]
     Active Substance: NIVOLUMAB
     Dosage: 240MG, ONCE
     Route: 042
     Dates: start: 20230718
  23. NIVOLUMAB [Suspect]
     Active Substance: NIVOLUMAB
     Dosage: 240MG, ONCE
     Route: 042
     Dates: start: 20230801
  24. NIVOLUMAB [Suspect]
     Active Substance: NIVOLUMAB
     Dosage: 240MG, ONCE
     Route: 042
     Dates: start: 20230814
  25. NIVOLUMAB [Suspect]
     Active Substance: NIVOLUMAB
     Dosage: 240MG, ONCE
     Route: 042
     Dates: start: 20230829
  26. NIVOLUMAB [Suspect]
     Active Substance: NIVOLUMAB
     Dosage: 240MG, ONCE
     Route: 042
     Dates: start: 20230912
  27. NIVOLUMAB [Suspect]
     Active Substance: NIVOLUMAB
     Dosage: 240MG, ONCE
     Route: 042
     Dates: start: 20230926
  28. NIVOLUMAB [Suspect]
     Active Substance: NIVOLUMAB
     Dosage: 240MG, ONCE
     Route: 042
     Dates: start: 20231010
  29. NIVOLUMAB [Suspect]
     Active Substance: NIVOLUMAB
     Dosage: 240MG, ONCE
     Route: 042
     Dates: start: 20231024
  30. NIVOLUMAB [Suspect]
     Active Substance: NIVOLUMAB
     Dosage: 240MG, ONCE
     Route: 042
     Dates: start: 20231107
  31. NIVOLUMAB [Suspect]
     Active Substance: NIVOLUMAB
     Dosage: 240MG, ONCE
     Route: 042
     Dates: start: 20231121
  32. NIVOLUMAB [Suspect]
     Active Substance: NIVOLUMAB
     Dosage: 240MG, ONCE
     Route: 042
     Dates: start: 20231205
  33. NIVOLUMAB [Suspect]
     Active Substance: NIVOLUMAB
     Dosage: 240MG, ONCE
     Route: 042
     Dates: start: 20231219
  34. NIVOLUMAB [Suspect]
     Active Substance: NIVOLUMAB
     Dosage: 240MG, ONCE
     Route: 042
     Dates: start: 20240102
  35. NIVOLUMAB [Suspect]
     Active Substance: NIVOLUMAB
     Dosage: 240MG, ONCE
     Route: 042
     Dates: start: 20240116
  36. NIVOLUMAB [Suspect]
     Active Substance: NIVOLUMAB
     Dosage: 240MG, ONCE
     Route: 042
     Dates: start: 20240131
  37. NIVOLUMAB [Suspect]
     Active Substance: NIVOLUMAB
     Dosage: 240MG, ONCE
     Route: 042
     Dates: start: 20240213
  38. NIVOLUMAB [Suspect]
     Active Substance: NIVOLUMAB
     Dosage: 240MG, ONCE
     Route: 042
     Dates: start: 20240227
  39. NIVOLUMAB [Suspect]
     Active Substance: NIVOLUMAB
     Dosage: 240MG, ONCE
     Route: 042
     Dates: start: 20240312
  40. NIVOLUMAB [Suspect]
     Active Substance: NIVOLUMAB
     Dosage: 240MG, ONCE
     Route: 042
     Dates: start: 20240326
  41. NIVOLUMAB [Suspect]
     Active Substance: NIVOLUMAB
     Dosage: 240MG, ONCE
     Route: 042
     Dates: start: 20240409
  42. NIVOLUMAB [Suspect]
     Active Substance: NIVOLUMAB
     Dosage: 240MG, ONCE
     Route: 042
     Dates: start: 20240423
  43. NIVOLUMAB [Suspect]
     Active Substance: NIVOLUMAB
     Dosage: 240MG, ONCE
     Route: 042
     Dates: start: 20240506
  44. NIVOLUMAB [Suspect]
     Active Substance: NIVOLUMAB
     Dosage: 240MG, ONCE
     Route: 042
     Dates: start: 20240522
  45. NIVOLUMAB [Suspect]
     Active Substance: NIVOLUMAB
     Dosage: 240MG, ONCE
     Route: 042
     Dates: start: 20240604
  46. NIVOLUMAB [Suspect]
     Active Substance: NIVOLUMAB
     Dosage: 240MG, ONCE
     Route: 042
     Dates: start: 20240618
  47. NIVOLUMAB [Suspect]
     Active Substance: NIVOLUMAB
     Dosage: 240MG, ONCE
     Route: 042
     Dates: start: 20240703
  48. NIVOLUMAB [Suspect]
     Active Substance: NIVOLUMAB
     Dosage: 240MG, ONCE
     Route: 042
     Dates: start: 20240716
  49. NIVOLUMAB [Suspect]
     Active Substance: NIVOLUMAB
     Dosage: 240MG, ONCE
     Route: 042
     Dates: start: 20240813
  50. NIVOLUMAB [Suspect]
     Active Substance: NIVOLUMAB
     Dosage: 240MG, ONCE
     Route: 042
     Dates: start: 20240827
  51. NIVOLUMAB [Suspect]
     Active Substance: NIVOLUMAB
     Dosage: 240MG, ONCE
     Route: 042
     Dates: start: 20240910
  52. NIVOLUMAB [Suspect]
     Active Substance: NIVOLUMAB
     Dosage: 240MG, ONCE
     Route: 042
     Dates: start: 20240924
  53. BECLOMETHASONE DIPROPIONATE\FORMOTEROL FUMARATE\GLYCOPYRROLATE [Concomitant]
     Active Substance: BECLOMETHASONE DIPROPIONATE\FORMOTEROL FUMARATE\GLYCOPYRROLATE
     Indication: Asthma
     Dosage: UNK
     Route: 055
  54. ALBUTEROL SULFATE [Concomitant]
     Active Substance: ALBUTEROL SULFATE
     Indication: Asthma
     Dosage: UNK
     Route: 055
  55. SERETIDE [Concomitant]
     Active Substance: FLUTICASONE PROPIONATE\SALMETEROL XINAFOATE
     Indication: Asthma
     Dosage: UNK
     Route: 055
  56. OMEPRAZOLE [Concomitant]
     Active Substance: OMEPRAZOLE
     Indication: Prophylaxis
     Dosage: UNK
     Route: 048
  57. TAMSULOSIN HYDROCHLORIDE [Concomitant]
     Active Substance: TAMSULOSIN HYDROCHLORIDE
     Indication: Benign prostatic hyperplasia
     Dosage: UNK
     Route: 048
  58. TRAMADOL [Concomitant]
     Active Substance: TRAMADOL
     Indication: Flank pain
     Dosage: UNK
     Route: 048
     Dates: start: 202211
  59. VALSARTAN [Concomitant]
     Active Substance: VALSARTAN
     Indication: Hypertension
     Dosage: UNK
     Route: 048
     Dates: start: 20221209
  60. ALBUTEROL [Concomitant]
     Active Substance: ALBUTEROL
     Indication: Asthma
     Dosage: UNK
     Route: 055
  61. BECLOMETHASONE DIPROPIONATE [Concomitant]
     Active Substance: BECLOMETHASONE DIPROPIONATE
     Indication: Asthma
     Dosage: UNK
     Route: 055
  62. FORMOTEROL [Concomitant]
     Active Substance: FORMOTEROL
     Indication: Asthma
     Dosage: UNK
     Route: 045
  63. CETALKONIUM CHLORIDE [Concomitant]
     Active Substance: CETALKONIUM CHLORIDE
     Indication: Gingival pain
     Dosage: UNK
     Route: 061
  64. ECONAZOLE NITRATE [Concomitant]
     Active Substance: ECONAZOLE NITRATE
     Indication: Fungal infection
     Dates: start: 20230106, end: 202301

REACTIONS (15)
  - Hepatic cytolysis [Recovering/Resolving]
  - Pulmonary embolism [Recovered/Resolved]
  - Hypertensive crisis [Recovered/Resolved]
  - Malnutrition [Recovered/Resolved]
  - Headache [Recovered/Resolved]
  - Skin toxicity [Recovered/Resolved]
  - Ingrowing nail [Recovered/Resolved]
  - Haemorrhoids [Recovered/Resolved]
  - Complication associated with device [Recovered/Resolved]
  - Mucosal inflammation [Recovered/Resolved]
  - Diarrhoea [Recovered/Resolved]
  - Diarrhoea [Recovered/Resolved]
  - Headache [Recovered/Resolved]
  - Hypertension [Recovering/Resolving]
  - Diarrhoea [Recovered/Resolved]

NARRATIVE: CASE EVENT DATE: 20230101
